FAERS Safety Report 8541146-6 (Version None)
Quarter: 2012Q3

REPORT INFORMATION
  Report Type: 
  Country: None (occurrence: None)
  Receive Date: 20120726
  Receipt Date: 20120713
  Transmission Date: 20120928
  Serious: Yes (Hospitalization, Other)
  Sender: FDA-Public Use
  Company Number: US-009507513-1203USA00793

PATIENT

DRUGS (8)
  1. INDERAL [Concomitant]
     Indication: ABDOMINAL DISCOMFORT
  2. SYNTHROID [Concomitant]
     Indication: AUTOIMMUNE THYROIDITIS
     Dosage: 0.1 MG, QD
     Dates: start: 19980302
  3. FOSAMAX [Suspect]
     Indication: OSTEOPENIA
     Dosage: 70 MG, QW
     Route: 048
     Dates: start: 20010901, end: 20110526
  4. GAVISCON (ALGINIC ACID (+) ALUMINUM HYDROXIDE (+) MAGNESIUM TRISILICAT [Concomitant]
     Indication: ABDOMINAL DISCOMFORT
  5. ELAVIL [Concomitant]
     Indication: ABDOMINAL DISCOMFORT
  6. PREDNISONE [Suspect]
     Indication: CHRONIC SINUSITIS
     Dosage: 0-60 MG
  7. FOSAMAX [Suspect]
     Indication: OSTEOPOROSIS
  8. FOSAMAX PLUS D [Suspect]
     Dosage: 70 MG, QW
     Dates: start: 20081220

REACTIONS (31)
  - BALANCE DISORDER [None]
  - INTERVERTEBRAL DISC DISORDER [None]
  - SPINAL OSTEOARTHRITIS [None]
  - SPINAL CORD COMPRESSION [None]
  - JOINT EFFUSION [None]
  - BACK PAIN [None]
  - BRONCHITIS [None]
  - REFLUX GASTRITIS [None]
  - IRRITABLE BOWEL SYNDROME [None]
  - BURSITIS [None]
  - CHILLS [None]
  - BONE LESION [None]
  - INTERVERTEBRAL DISC DEGENERATION [None]
  - OSTEOARTHRITIS [None]
  - CONTUSION [None]
  - COUGH [None]
  - PNEUMONIA [None]
  - MUSCLE STRAIN [None]
  - NECK PAIN [None]
  - PAIN IN EXTREMITY [None]
  - HIP FRACTURE [None]
  - FACET JOINT SYNDROME [None]
  - SCIATICA [None]
  - EPICONDYLITIS [None]
  - ADVERSE DRUG REACTION [None]
  - FALL [None]
  - TENDONITIS [None]
  - SINUS TACHYCARDIA [None]
  - FEMUR FRACTURE [None]
  - ASTHMA [None]
  - GASTROOESOPHAGEAL REFLUX DISEASE [None]
